FAERS Safety Report 4611088-7 (Version None)
Quarter: 2005Q1

REPORT INFORMATION
  Report Type: 
  Country: None (occurrence: None)
  Receive Date: 20050316
  Receipt Date: 20050316
  Transmission Date: 20050727
  Serious: Yes (Other)
  Sender: FDA-Public Use
  Company Number: None

PATIENT
  Age: 66 Year
  Sex: Female
  Weight: 122.4712 kg

DRUGS (1)
  1. MOBIC [Suspect]
     Indication: OSTEOARTHRITIS
     Dosage: 7.5 MG 2/DAY ORAL
     Route: 048
     Dates: start: 20030101, end: 20040101

REACTIONS (2)
  - DISTURBANCE IN ATTENTION [None]
  - GAIT DISTURBANCE [None]
